FAERS Safety Report 12545364 (Version 2)
Quarter: 2016Q3

REPORT INFORMATION
  Report Type: Report from Study
  Country: US (occurrence: US)
  Receive Date: 20160711
  Receipt Date: 20160809
  Transmission Date: 20161109
  Serious: Yes (Hospitalization)
  Sender: FDA-Public Use
  Company Number: US-ACTELION-A-US2014-102500

PATIENT
  Age: 76 Year
  Sex: Female

DRUGS (2)
  1. TRACLEER [Suspect]
     Active Substance: BOSENTAN
     Dosage: 125 MG, BID
     Route: 048
  2. TRACLEER [Suspect]
     Active Substance: BOSENTAN
     Indication: PULMONARY ARTERIAL HYPERTENSION
     Dosage: 125 MG, BID
     Route: 048
     Dates: start: 20090923

REACTIONS (8)
  - Sensory loss [Unknown]
  - Fatigue [Unknown]
  - Vertigo positional [Unknown]
  - Dyspnoea [Unknown]
  - Cough [Unknown]
  - Eye movement disorder [Unknown]
  - Fall [Unknown]
  - Dizziness [Unknown]

NARRATIVE: CASE EVENT DATE: 201606
